FAERS Safety Report 5889591-1 (Version None)
Quarter: 2008Q3

REPORT INFORMATION
  Report Type: 
  Country: None (occurrence: None)
  Receive Date: 20080919
  Receipt Date: 20080912
  Transmission Date: 20090109
  Serious: Yes (Hospitalization)
  Sender: FDA-Public Use
  Company Number: A0748264A

PATIENT
  Age: 72 Year
  Sex: Male
  Weight: 103.2 kg

DRUGS (9)
  1. AVANDIA [Suspect]
     Indication: DIABETES MELLITUS
     Dosage: 2MG TWICE PER DAY
     Route: 048
     Dates: start: 20060804
  2. AVANDAMET [Suspect]
     Indication: DIABETES MELLITUS
     Route: 048
     Dates: start: 20041231, end: 20070101
  3. ACTOS [Concomitant]
  4. GLUCOPHAGE [Concomitant]
  5. AMARYL [Concomitant]
  6. GLYBURIDE [Concomitant]
  7. GLUCOTROL [Concomitant]
  8. TOPROL-XL [Concomitant]
  9. CELEBREX [Concomitant]

REACTIONS (3)
  - CORONARY ARTERY DISEASE [None]
  - HEART INJURY [None]
  - MYOCARDIAL INFARCTION [None]
